FAERS Safety Report 14654766 (Version 3)
Quarter: 2018Q2

REPORT INFORMATION
  Report Type: Spontaneous
  Country: US (occurrence: US)
  Receive Date: 20180319
  Receipt Date: 20180508
  Transmission Date: 20180711
  Serious: Yes (Hospitalization, Other)
  Sender: FDA-Public Use
  Company Number: US-009507513-1803USA007594

PATIENT
  Sex: Male

DRUGS (1)
  1. JANUMET [Suspect]
     Active Substance: METFORMIN HYDROCHLORIDE\SITAGLIPTIN PHOSPHATE
     Indication: TYPE 2 DIABETES MELLITUS
     Dosage: 50/1000 MG, BID
     Route: 048
     Dates: start: 201001, end: 201204

REACTIONS (6)
  - Nephrolithiasis [Not Recovered/Not Resolved]
  - Stress [Unknown]
  - Abdominal pain [Unknown]
  - Pancreatic neoplasm [Not Recovered/Not Resolved]
  - Pancreatitis [Not Recovered/Not Resolved]
  - Type 1 diabetes mellitus [Unknown]

NARRATIVE: CASE EVENT DATE: 201204
